FAERS Safety Report 18455254 (Version 1)
Quarter: 2020Q4

REPORT INFORMATION
  Report Type: Report from Study
  Country: IR (occurrence: IR)
  Receive Date: 20201103
  Receipt Date: 20201103
  Transmission Date: 20210114
  Serious: Yes (Death, Hospitalization)
  Sender: FDA-Public Use
  Company Number: IR-EMD SERONO-9195975

PATIENT
  Age: 46 Year
  Sex: Male

DRUGS (1)
  1. REBIF [Suspect]
     Active Substance: INTERFERON BETA-1A
     Indication: MULTIPLE SCLEROSIS
     Dosage: PREFILLED SYRINGE
     Dates: start: 20140816

REACTIONS (2)
  - Death [Fatal]
  - Road traffic accident [Unknown]

NARRATIVE: CASE EVENT DATE: 20200905
